FAERS Safety Report 5475592-4 (Version None)
Quarter: 2007Q3

REPORT INFORMATION
  Report Type: 
  Country: None (occurrence: None)
  Receive Date: 20070911
  Receipt Date: 20060802
  Transmission Date: 20080115
  Serious: No
  Sender: FDA-Public Use
  Company Number: 06H-163-0309527-00

PATIENT
  Age: 65 Year
  Sex: Female

DRUGS (1)
  1. VANCOMYCIN HCL [Suspect]
     Indication: CULTURE
     Dosage: INTRAVENOUS
     Route: 042
     Dates: start: 20060719, end: 20060719

REACTIONS (1)
  - RED MAN SYNDROME [None]
